FAERS Safety Report 6083989-7 (Version None)
Quarter: 2009Q1

REPORT INFORMATION
  Report Type: 
  Country: None (occurrence: None)
  Receive Date: 20090219
  Receipt Date: 20090206
  Transmission Date: 20090719
  Serious: Yes (Death)
  Sender: FDA-Public Use
  Company Number: GB-ELI_LILLY_AND_COMPANY-GB200901004559

PATIENT
  Sex: Male

DRUGS (4)
  1. ZYPREXA [Suspect]
  2. ALCOHOL [Concomitant]
  3. MIRTAZAPINE [Concomitant]
     Indication: DEPRESSION
     Dosage: 30 MG, UNK
     Route: 048
     Dates: start: 20080701
  4. BUSPIRONE HCL [Concomitant]
     Indication: ANXIETY
     Dosage: 5 MG, 2/D
     Dates: start: 20080701

REACTIONS (2)
  - COMPLETED SUICIDE [None]
  - OVERDOSE [None]
